FAERS Safety Report 23673462 (Version 1)
Quarter: 2024Q1

REPORT INFORMATION
  Report Type: Spontaneous
  Country: CH (occurrence: CH)
  Receive Date: 20240326
  Receipt Date: 20240326
  Transmission Date: 20240410
  Serious: Yes (Hospitalization, Other)
  Sender: FDA-Public Use
  Company Number: CH-SA-SAC20240307000515

PATIENT
  Age: 18 Year
  Sex: Female

DRUGS (4)
  1. DUPILUMAB [Suspect]
     Active Substance: DUPILUMAB
     Indication: Dermatitis atopic
     Dosage: 300 MG, QOW
     Route: 058
     Dates: start: 20221223
  2. MIZZI GYNIAL [Concomitant]
     Dosage: UNK UNK, QD
  3. DAFALGAN [Concomitant]
     Active Substance: ACETAMINOPHEN
     Dosage: UNK UNK, PRN, MAX. 1G MAX. ONCE IN 6 HOURS
  4. IBUPROFEN [Concomitant]
     Active Substance: IBUPROFEN
     Dosage: 400 MG, Q8H (400MG MAX. ONCE EVERY 8 HOURS)

REACTIONS (7)
  - Corneal opacity [Unknown]
  - Keratitis [Recovered/Resolved]
  - Vision blurred [Recovered/Resolved]
  - Corneal scar [Unknown]
  - Mydriasis [Unknown]
  - Erythema of eyelid [Unknown]
  - Swelling of eyelid [Unknown]

NARRATIVE: CASE EVENT DATE: 20240130
